FAERS Safety Report 5318486-7 (Version None)
Quarter: 2007Q2

REPORT INFORMATION
  Report Type: 
  Country: None (occurrence: None)
  Receive Date: 20070501
  Receipt Date: 20070316
  Transmission Date: 20071010
  Serious: Yes (Hospitalization)
  Sender: FDA-Public Use
  Company Number: 2007AL000114

PATIENT
  Age: 34 Year
  Sex: Female

DRUGS (5)
  1. DICLOFENAC SODIUM [Suspect]
     Indication: ANALGESIC THERAPY
  2. AUTMENTIN-DUO [Concomitant]
  3. ENOXAPARIN SODIUM [Concomitant]
  4. GRANISETRON [Concomitant]
  5. AMOXICILLIN + CLAVULANATE POTASSIUM [Concomitant]

REACTIONS (9)
  - ACUTE GENERALISED EXANTHEMATOUS PUSTULOSIS [None]
  - ERYTHEMA [None]
  - MALAISE [None]
  - PYREXIA [None]
  - RASH [None]
  - RASH PRURITIC [None]
  - SKIN EXFOLIATION [None]
  - SKIN OEDEMA [None]
  - TACHYCARDIA [None]
